FAERS Safety Report 4642379-1 (Version None)
Quarter: 2005Q2

REPORT INFORMATION
  Report Type: 
  Country: None (occurrence: None)
  Receive Date: 20050422
  Receipt Date: 20040910
  Transmission Date: 20051028
  Serious: Yes (Hospitalization)
  Sender: FDA-Public Use
  Company Number: JP-GLAXOSMITHKLINE-B0345402A

PATIENT
  Age: 22 Year
  Sex: Male

DRUGS (9)
  1. ABACAVIR SULPHATE [Suspect]
     Indication: HIV INFECTION
     Dosage: 600MG PER DAY
     Route: 048
     Dates: start: 20000518, end: 20020424
  2. STAVUDINE [Suspect]
     Indication: HIV INFECTION
     Route: 048
     Dates: start: 20000117, end: 20020424
  3. NELFINAVIR MESYLATE [Suspect]
     Indication: HIV INFECTION
     Dosage: 2000MG PER DAY
     Route: 048
     Dates: start: 20000117, end: 20020424
  4. EFAVIRENZ [Suspect]
     Indication: HIV INFECTION
     Route: 048
     Dates: start: 20000518, end: 20020424
  5. PREDNISOLONE [Concomitant]
     Indication: NEPHROTIC SYNDROME
     Dates: start: 20020401
  6. FAMOTIDINE [Concomitant]
     Indication: GASTRITIS
     Dosage: 20MG TWICE PER DAY
     Dates: start: 20020405
  7. FRUSEMIDE [Concomitant]
     Indication: NEPHROTIC SYNDROME
     Dosage: 20MG TWICE PER DAY
     Route: 065
     Dates: start: 20020419
  8. ALBUMIN (HUMAN) [Concomitant]
     Indication: NEPHROTIC SYNDROME
     Dosage: 10G PER DAY
     Route: 042
     Dates: start: 20020419, end: 20020421
  9. FACTOR IX COMPLEX [Concomitant]
     Indication: HAEMOPHILIA
     Dosage: 2000IU PER DAY
     Route: 042
     Dates: start: 20020415, end: 20020417

REACTIONS (2)
  - NEPHROTIC SYNDROME [None]
  - RENAL IMPAIRMENT [None]
